FAERS Safety Report 7324333-4 (Version None)
Quarter: 2011Q1

REPORT INFORMATION
  Report Type: 
  Country: None (occurrence: None)
  Receive Date: 20110301
  Receipt Date: 20110223
  Transmission Date: 20110831
  Serious: Yes (Other)
  Sender: FDA-Public Use
  Company Number: GR-PFIZER INC-2011039065

PATIENT
  Age: 65 Year
  Sex: Male
  Weight: 111 kg

DRUGS (4)
  1. DILATREND [Concomitant]
  2. SUTENT [Suspect]
     Indication: RENAL CANCER
     Dosage: 50 MG, 1X/DAY
     Route: 048
     Dates: start: 20091001
  3. SALOSPIR [Concomitant]
  4. COAPROVEL [Concomitant]

REACTIONS (2)
  - HYPOTHYROIDISM [None]
  - MYXOEDEMA [None]
